FAERS Safety Report 7388834-5 (Version None)
Quarter: 2011Q2

REPORT INFORMATION
  Report Type: 
  Country: None (occurrence: None)
  Receive Date: 20110401
  Receipt Date: 20110324
  Transmission Date: 20111010
  Serious: Yes (Other)
  Sender: FDA-Public Use
  Company Number: DK-ASTRAZENECA-2011SE16557

PATIENT
  Age: 23690 Day
  Sex: Female
  Weight: 52 kg

DRUGS (4)
  1. SELO-ZOK [Concomitant]
     Indication: HYPERTENSION
     Dates: start: 20080201, end: 20110217
  2. CRESTOR [Suspect]
     Indication: HYPERCHOLESTEROLAEMIA
     Route: 048
     Dates: start: 20110107, end: 20110304
  3. CORODIL [Concomitant]
     Indication: TRANSIENT ISCHAEMIC ATTACK
     Dates: start: 20080201, end: 20110217
  4. HJERDYL [Concomitant]
     Indication: TRANSIENT ISCHAEMIC ATTACK
     Dates: start: 20080201, end: 20110217

REACTIONS (2)
  - HYPERTENSION [None]
  - TRANSIENT ISCHAEMIC ATTACK [None]
